FAERS Safety Report 9185146 (Version 1)
Quarter: 2013Q1

REPORT INFORMATION
  Report Type: Spontaneous
  Country: FR (occurrence: FR)
  Receive Date: 20130325
  Receipt Date: 20130325
  Transmission Date: 20140127
  Serious: Yes (Other)
  Sender: FDA-Public Use
  Company Number: FR-ABBOTT-13P-056-1065644-00

PATIENT
  Sex: Female

DRUGS (3)
  1. HUMIRA [Suspect]
     Indication: ANKYLOSING SPONDYLITIS
     Route: 058
     Dates: start: 201202, end: 201206
  2. HUMIRA [Suspect]
     Dates: end: 201212
  3. EFFEXOR [Concomitant]
     Indication: DEPRESSION
     Dates: start: 2009, end: 2012

REACTIONS (1)
  - Depression [Recovered/Resolved]
